FAERS Safety Report 16726314 (Version 3)
Quarter: 2021Q4

REPORT INFORMATION
  Report Type: Spontaneous
  Country: SK (occurrence: SK)
  Receive Date: 20190821
  Receipt Date: 20211117
  Transmission Date: 20220303
  Serious: Yes (Hospitalization, Other)
  Sender: FDA-Public Use
  Company Number: SK-NOVPHSZ-PHHY2019SK181643

PATIENT
  Age: 60 Year
  Sex: Male

DRUGS (4)
  1. XTANDI [Suspect]
     Active Substance: ENZALUTAMIDE
     Indication: Hormone-refractory prostate cancer
     Route: 048
     Dates: start: 20161220, end: 201812
  2. DEGARELIX [Concomitant]
     Active Substance: DEGARELIX
     Indication: Hormone-refractory prostate cancer
     Dosage: UNK UNK, UNKNOWN FREQ.
     Route: 065
     Dates: start: 20100607
  3. DEGARELIX [Concomitant]
     Active Substance: DEGARELIX
     Route: 058
  4. DEGARELIX [Concomitant]
     Active Substance: DEGARELIX
     Dosage: 80 MG, EVERY 4 WEEKS ( EVERY 28 DAYS)
     Route: 058
     Dates: end: 201812

REACTIONS (2)
  - General physical health deterioration [Recovered/Resolved]
  - Restless legs syndrome [Recovered/Resolved]

NARRATIVE: CASE EVENT DATE: 20181201
